FAERS Safety Report 9741158 (Version 1)
Quarter: 2013Q4

REPORT INFORMATION
  Report Type: Spontaneous
  Country: US (occurrence: US)
  Receive Date: 20131209
  Receipt Date: 20131209
  Transmission Date: 20140711
  Serious: Yes (Hospitalization, Other)
  Sender: FDA-Public Use
  Company Number: US-ELI_LILLY_AND_COMPANY-US201311008398

PATIENT
  Sex: Female

DRUGS (3)
  1. FORTEO [Suspect]
     Indication: OSTEOPENIA
     Dosage: UNK, QD
     Route: 065
  2. FORTEO [Suspect]
     Dosage: UNK, QD
     Route: 065
     Dates: start: 20130912
  3. VITAMINS /90003601/ [Concomitant]
     Indication: PRODUCT USED FOR UNKNOWN INDICATION
     Route: 065

REACTIONS (9)
  - Femur fracture [Recovered/Resolved]
  - Staphylococcal infection [Unknown]
  - Thrombosis [Unknown]
  - Neuropathy peripheral [Unknown]
  - Device breakage [Unknown]
  - Impaired healing [Recovered/Resolved]
  - Bone disorder [Unknown]
  - Drug ineffective [Unknown]
  - Off label use [Unknown]
